FAERS Safety Report 8793356 (Version 3)
Quarter: 2013Q1

REPORT INFORMATION
  Report Type: Spontaneous
  Country: US (occurrence: US)
  Receive Date: 20120917
  Receipt Date: 20130325
  Transmission Date: 20140127
  Serious: Yes (Other)
  Sender: FDA-Public Use
  Company Number: US-BRISTOL-MYERS SQUIBB COMPANY-16938128

PATIENT
  Age: 70 Year
  Sex: Female
  Weight: 108.84 kg

DRUGS (5)
  1. GLUCOPHAGE [Suspect]
     Indication: TYPE 1 DIABETES MELLITUS
  2. DETROL LA [Suspect]
     Indication: URINARY INCONTINENCE
     Dosage: CAPS
     Route: 048
     Dates: start: 2010, end: 201301
  3. GLIMEPIRIDE [Suspect]
     Indication: TYPE 1 DIABETES MELLITUS
  4. LANTUS [Suspect]
     Indication: TYPE 1 DIABETES MELLITUS
  5. LYRICA [Suspect]
     Indication: FIBROMYALGIA
     Dosage: CAPS
     Route: 048
     Dates: start: 2010

REACTIONS (4)
  - Accident [Unknown]
  - Blood glucose decreased [Recovered/Resolved]
  - Road traffic accident [Unknown]
  - Drug ineffective [Unknown]
